FAERS Safety Report 16791232 (Version 2)
Quarter: 2019Q4

REPORT INFORMATION
  Report Type: Report from Study
  Country: None (occurrence: US)
  Receive Date: 20190910
  Receipt Date: 20191001
  Transmission Date: 20200122
  Serious: Yes (Hospitalization)
  Sender: FDA-Public Use
  Company Number: US-ABBVIE-19K-163-2918223-00

PATIENT
  Age: 71 Year
  Sex: Female
  Weight: 51.3 kg

DRUGS (7)
  1. VENCLEXTA [Suspect]
     Active Substance: VENETOCLAX
     Indication: ACUTE MYELOID LEUKAEMIA
     Dosage: FREQUENCY AS DIRECTED
     Route: 048
     Dates: start: 20190525, end: 2019
  2. DECITABINE. [Concomitant]
     Active Substance: DECITABINE
     Indication: CHEMOTHERAPY
  3. NOXAFIL [Concomitant]
     Active Substance: POSACONAZOLE
     Indication: ORAL CANDIDIASIS
  4. ACYCLOVIR. [Concomitant]
     Active Substance: ACYCLOVIR
     Indication: WHITE BLOOD CELL COUNT
  5. VENCLEXTA [Suspect]
     Active Substance: VENETOCLAX
     Route: 048
     Dates: start: 2019
  6. LEVOFLOXACIN. [Concomitant]
     Active Substance: LEVOFLOXACIN
     Indication: ANTIBIOTIC THERAPY
  7. MIRALAX [Concomitant]
     Active Substance: POLYETHYLENE GLYCOL 3350
     Indication: CONSTIPATION

REACTIONS (3)
  - Central venous catheterisation [Recovered/Resolved]
  - Device related infection [Recovered/Resolved]
  - Streptococcal infection [Recovered/Resolved]

NARRATIVE: CASE EVENT DATE: 20190525
